FAERS Safety Report 4459958-7 (Version None)
Quarter: 2004Q3

REPORT INFORMATION
  Report Type: 
  Country: None (occurrence: None)
  Receive Date: 20040928
  Receipt Date: 20030915
  Transmission Date: 20050211
  Serious: No
  Sender: FDA-Public Use
  Company Number: US-GLAXOSMITHKLINE-A0425930A

PATIENT
  Age: 65 Year
  Sex: Female

DRUGS (3)
  1. SEREVENT [Suspect]
     Indication: ASTHMA
     Dosage: 2 PER DAY
     Route: 055
     Dates: start: 20030802, end: 20030901
  2. MULTIVITAMIN [Concomitant]
  3. PROVENTIL [Concomitant]

REACTIONS (4)
  - ASTHMA [None]
  - NASAL SINUS DRAINAGE [None]
  - RHINORRHOEA [None]
  - TOOTH DEPOSIT [None]
